FAERS Safety Report 5016483-2 (Version None)
Quarter: 2006Q2

REPORT INFORMATION
  Report Type: 
  Country: None (occurrence: None)
  Receive Date: 20060602
  Receipt Date: 20060424
  Transmission Date: 20061013
  Serious: Yes (Hospitalization)
  Sender: FDA-Public Use
  Company Number: PHEH2006US05343

PATIENT
  Age: 74 Year
  Sex: Female

DRUGS (10)
  1. EXJADE [Suspect]
     Indication: HAEMOSIDEROSIS
     Dosage: 1500 MG, QD
     Route: 048
     Dates: start: 20060410, end: 20060417
  2. AVAPRO [Concomitant]
     Dosage: 300 MG, BID
  3. SYNTHROID [Concomitant]
     Dosage: UNK NG, QD
  4. NORVASC [Concomitant]
     Dosage: 10 MG, QD
  5. LEXAPRO [Concomitant]
     Dosage: 10 MG, QD
  6. THALIDOMIDE [Concomitant]
  7. LASIX [Concomitant]
     Dosage: 20 MG, QD
  8. COUMADIN [Concomitant]
  9. COZAAR [Concomitant]
     Dosage: 50 MG, QD
  10. GLYBURIDE [Concomitant]
     Dosage: 2.5 MG, QD

REACTIONS (17)
  - ARTHRALGIA [None]
  - DYSGEUSIA [None]
  - DYSPNOEA [None]
  - ERYTHEMA [None]
  - GENERALISED OEDEMA [None]
  - LEUKOCYTOCLASTIC VASCULITIS [None]
  - NAUSEA [None]
  - ORAL PAIN [None]
  - PAIN [None]
  - PETECHIAE [None]
  - PHARYNGEAL OEDEMA [None]
  - PHOTOSENSITIVITY REACTION [None]
  - RASH GENERALISED [None]
  - RASH PAPULAR [None]
  - RASH PRURITIC [None]
  - SWOLLEN TONGUE [None]
  - VOMITING [None]
